FAERS Safety Report 7773435-7 (Version None)
Quarter: 2011Q3

REPORT INFORMATION
  Report Type: 
  Country: None (occurrence: None)
  Receive Date: 20110922
  Receipt Date: 20110914
  Transmission Date: 20111222
  Serious: Yes (Other)
  Sender: FDA-Public Use
  Company Number: US-MILLENNIUM PHARMACEUTICALS, INC.-2011-04306

PATIENT
  Sex: Male
  Weight: 67.1 kg

DRUGS (11)
  1. MELPHALAN HYDROCHLORIDE [Suspect]
     Indication: MULTIPLE MYELOMA
     Dosage: 200 MG, UNK
     Route: 042
     Dates: start: 20110610, end: 20110611
  2. FLUDARABINE PHOSPHATE [Suspect]
     Indication: MULTIPLE MYELOMA
  3. POTASSIUM CHLORIDE [Concomitant]
     Indication: PRODUCT USED FOR UNKNOWN INDICATION
     Dosage: 20 MEQ, QD
     Route: 048
  4. ZOFRAN [Concomitant]
     Indication: PRODUCT USED FOR UNKNOWN INDICATION
     Dosage: 8 MG, TID
     Route: 048
  5. ACYCLOVIR [Concomitant]
     Indication: PRODUCT USED FOR UNKNOWN INDICATION
     Dosage: 800 MG, BID
     Route: 048
  6. VELCADE [Suspect]
     Indication: MULTIPLE MYELOMA
     Dosage: 2.6 MG, UNK
     Route: 042
     Dates: start: 20110611, end: 20110611
  7. MS CONTIN [Concomitant]
     Indication: PRODUCT USED FOR UNKNOWN INDICATION
     Dosage: 15 MG, Q8HR
     Route: 048
  8. CIPRO                              /00042702/ [Concomitant]
     Indication: PRODUCT USED FOR UNKNOWN INDICATION
     Dosage: 500 MG, BID
     Route: 048
  9. PREVACID [Concomitant]
     Indication: PRODUCT USED FOR UNKNOWN INDICATION
     Dosage: 30 MG, BID
     Route: 048
  10. DILAUDID [Concomitant]
     Indication: PRODUCT USED FOR UNKNOWN INDICATION
     Dosage: 2 MG, PRN
     Route: 048
  11. ATIVAN [Concomitant]
     Indication: PRODUCT USED FOR UNKNOWN INDICATION
     Dosage: 1 MG, PRN
     Route: 048

REACTIONS (1)
  - ACUTE GRAFT VERSUS HOST DISEASE [None]
